FAERS Safety Report 4467815-5 (Version None)
Quarter: 2004Q4

REPORT INFORMATION
  Report Type: 
  Country: None (occurrence: None)
  Receive Date: 20041004
  Receipt Date: 20040921
  Transmission Date: 20050328
  Serious: Yes (Death, Hospitalization)
  Sender: FDA-Public Use
  Company Number: 2004058604

PATIENT
  Age: 82 Year
  Sex: Male

DRUGS (4)
  1. CITALOR (ATORVASTATIN) [Suspect]
     Indication: DYSLIPIDAEMIA
     Dosage: 10 MG (10 MG, 1 IN 1 D), ORAL
     Route: 048
     Dates: start: 19990901, end: 20040805
  2. ISOSORBIDE DINITRATE [Concomitant]
  3. BAMETHAN SULFATE (BAMETHAN SULFATE) [Concomitant]
  4. DILTIAZEM [Concomitant]

REACTIONS (4)
  - ARTERIAL OCCLUSIVE DISEASE [None]
  - BONE PAIN [None]
  - MYOCARDIAL INFARCTION [None]
  - UNEVALUABLE EVENT [None]
